FAERS Safety Report 25630141 (Version 4)
Quarter: 2025Q3

REPORT INFORMATION
  Report Type: Report from Study
  Country: US (occurrence: US)
  Receive Date: 20250801
  Receipt Date: 20250915
  Transmission Date: 20251020
  Serious: No
  Sender: SUNOVION
  Company Number: US-SUMITOMO PHARMA SWITZERLAND GMBH-2025SPA009466

PATIENT
  Age: 73 Year
  Sex: Male
  Weight: 123.54 kg

DRUGS (7)
  1. ORGOVYX [Suspect]
     Active Substance: RELUGOLIX
     Indication: Prostate cancer
     Dosage: 120 MG, QD
     Route: 048
     Dates: start: 20250717, end: 20250818
  2. ATENOLOL [Concomitant]
     Active Substance: ATENOLOL
  3. COENZYME Q10 [Concomitant]
     Active Substance: DIETARY SUPPLEMENT\UBIDECARENONE
  4. FLECAINIDE ACETATE [Concomitant]
     Active Substance: FLECAINIDE ACETATE
  5. LEVOTHYROXINE SODIUM [Concomitant]
     Active Substance: LEVOTHYROXINE SODIUM
  6. IVERMECTIN [Concomitant]
     Active Substance: IVERMECTIN
  7. LOSARTAN POTASSIUM [Concomitant]
     Active Substance: LOSARTAN POTASSIUM

REACTIONS (9)
  - Glossodynia [Recovered/Resolved]
  - Pain [Unknown]
  - Dyspnoea [Unknown]
  - Tongue biting [Unknown]
  - Constipation [Unknown]
  - Feeling hot [Unknown]
  - Incorrect dose administered [Recovered/Resolved]
  - Therapeutic response unexpected [Recovered/Resolved]
  - Product dose omission issue [Recovered/Resolved]

NARRATIVE: CASE EVENT DATE: 20250717
